FAERS Safety Report 26177200 (Version 1)
Quarter: 2025Q4

REPORT INFORMATION
  Report Type: Spontaneous
  Country: JP (occurrence: JP)
  Receive Date: 20251219
  Receipt Date: 20251219
  Transmission Date: 20260118
  Serious: Yes (Hospitalization, Other)
  Sender: ROCHE
  Company Number: JP-CHUGAI-2025040793

PATIENT
  Age: 65 Year
  Sex: Male

DRUGS (2)
  1. AVASTIN [Suspect]
     Active Substance: BEVACIZUMAB
     Indication: Malignant glioma
     Dosage: UNK
     Route: 041
  2. TEMODAL [Concomitant]
     Active Substance: TEMOZOLOMIDE
     Indication: Malignant glioma
     Dosage: UNK

REACTIONS (6)
  - Gait inability [Unknown]
  - Asthenia [Unknown]
  - Bedridden [Unknown]
  - Nasopharyngitis [Unknown]
  - Malaise [Unknown]
  - Pyrexia [Recovering/Resolving]

NARRATIVE: CASE EVENT DATE: 20250101
